FAERS Safety Report 14302995 (Version 2)
Quarter: 2025Q2

REPORT INFORMATION
  Report Type: Spontaneous
  Country: DE (occurrence: DE)
  Receive Date: 20171219
  Receipt Date: 20250423
  Transmission Date: 20250717
  Serious: Yes (Life-Threatening, Other)
  Sender: TEVA
  Company Number: DE-NOVPHSZ-PHHO2017DE012339

PATIENT
  Age: 20 Year
  Sex: Male

DRUGS (4)
  1. TACROLIMUS [Suspect]
     Active Substance: TACROLIMUS
     Indication: Graft versus host disease
     Route: 065
     Dates: start: 20170815
  2. COTRIM [Concomitant]
     Active Substance: SULFAMETHOXAZOLE\TRIMETHOPRIM
     Indication: Pneumonia
     Route: 065
  3. FOSCARNET [Concomitant]
     Active Substance: FOSCARNET
     Indication: Cytomegalovirus infection
     Dosage: DOSAGE TEXT: 2630 MG, BID
     Route: 065
     Dates: start: 20170822
  4. METHYLPREDNISOLONE [Suspect]
     Active Substance: METHYLPREDNISOLONE
     Indication: Graft versus host disease
     Dosage: 80 MG, BID
     Route: 042
     Dates: start: 20170812

REACTIONS (5)
  - Respiratory failure [Recovered/Resolved]
  - Non-cardiac chest pain [Recovered/Resolved]
  - Pulmonary alveolar haemorrhage [Recovered/Resolved]
  - Blood lactate dehydrogenase increased [Unknown]
  - Pleural effusion [Unknown]

NARRATIVE: CASE EVENT DATE: 20170824
